FAERS Safety Report 14401001 (Version 1)
Quarter: 2018Q1

REPORT INFORMATION
  Report Type: Spontaneous
  Country: US (occurrence: US)
  Receive Date: 20180113
  Receipt Date: 20180113
  Transmission Date: 20180509
  Serious: Yes (Hospitalization)
  Sender: FDA-Public Use
  Company Number: None

PATIENT
  Age: 73 Year
  Sex: Male
  Weight: 101.5 kg

DRUGS (3)
  1. LENALIDOMIDE (CC-5013) [Suspect]
     Active Substance: LENALIDOMIDE
     Dates: end: 20171229
  2. DEXAMETHASONE. [Suspect]
     Active Substance: DEXAMETHASONE
     Dates: end: 20171229
  3. VELCADE [Suspect]
     Active Substance: BORTEZOMIB
     Dates: end: 20171229

REACTIONS (5)
  - Atrial fibrillation [None]
  - Asthenia [None]
  - Fall [None]
  - Pneumonia [None]
  - Hypoglycaemia [None]

NARRATIVE: CASE EVENT DATE: 20171230
